FAERS Safety Report 7427685-X (Version None)
Quarter: 2011Q1

REPORT INFORMATION
  Report Type: 
  Country: None (occurrence: None)
  Receive Date: 20110328
  Receipt Date: 20110315
  Transmission Date: 20110831
  Serious: Yes (Hospitalization)
  Sender: FDA-Public Use
  Company Number: AEUSA201100056

PATIENT
  Age: 65 Year
  Sex: Male

DRUGS (1)
  1. GAMUNEX [Suspect]
     Indication: HYPOGAMMAGLOBULINAEMIA
     Dosage: 20 GM;TOTAL;IV
     Route: 042
     Dates: start: 20050601

REACTIONS (6)
  - DEVICE RELATED SEPSIS [None]
  - WRONG TECHNIQUE IN DRUG USAGE PROCESS [None]
  - MENTAL STATUS CHANGES [None]
  - VOMITING [None]
  - INCONTINENCE [None]
  - MUSCLE RIGIDITY [None]
